FAERS Safety Report 10729652 (Version 7)
Quarter: 2016Q1

REPORT INFORMATION
  Report Type: Report from Study
  Country: US (occurrence: US)
  Receive Date: 20150122
  Receipt Date: 20160323
  Transmission Date: 20160525
  Serious: Yes (Other)
  Sender: FDA-Public Use
  Company Number: US-SA-2014SA174829

PATIENT
  Age: 62 Year
  Sex: Female

DRUGS (4)
  1. AUBAGIO [Suspect]
     Active Substance: TERIFLUNOMIDE
     Indication: MULTIPLE SCLEROSIS
     Route: 048
     Dates: start: 20141210
  2. LEVOTHYROXINE. [Concomitant]
     Active Substance: LEVOTHYROXINE
  3. AUBAGIO [Suspect]
     Active Substance: TERIFLUNOMIDE
     Indication: MULTIPLE SCLEROSIS
     Route: 048
     Dates: start: 20141210
  4. ASPIRIN. [Concomitant]
     Active Substance: ASPIRIN

REACTIONS (23)
  - Muscle spasms [Recovering/Resolving]
  - Blood potassium decreased [Unknown]
  - Pain [Unknown]
  - Pain in extremity [Unknown]
  - Eyelid ptosis [Unknown]
  - Condition aggravated [Unknown]
  - Burning sensation [Unknown]
  - Pruritus generalised [Unknown]
  - Ocular icterus [Unknown]
  - Limb discomfort [Unknown]
  - Tongue biting [Unknown]
  - Multiple sclerosis relapse [Recovered/Resolved]
  - Foot deformity [Unknown]
  - Local swelling [Unknown]
  - Arthralgia [Unknown]
  - Paraesthesia [Unknown]
  - Insomnia [Unknown]
  - Limb discomfort [Recovered/Resolved]
  - Hot flush [Unknown]
  - Alopecia [Recovering/Resolving]
  - Seizure [Unknown]
  - Muscle spasms [Unknown]
  - Asthenia [Recovered/Resolved]

NARRATIVE: CASE EVENT DATE: 20141211
